FAERS Safety Report 7427308-X (Version None)
Quarter: 2011Q2

REPORT INFORMATION
  Report Type: 
  Country: None (occurrence: None)
  Receive Date: 20110420
  Receipt Date: 20110415
  Transmission Date: 20111010
  Serious: No
  Sender: FDA-Public Use
  Company Number: US-PFIZER INC-2011083632

PATIENT
  Sex: Female

DRUGS (2)
  1. NORVASC [Suspect]
     Dosage: UNK
     Route: 048
  2. AMLODIPINE BESYLATE [Suspect]
     Dosage: UNK

REACTIONS (2)
  - NERVOUSNESS [None]
  - FEELING JITTERY [None]
